FAERS Safety Report 5099792-0 (Version None)
Quarter: 2006Q3

REPORT INFORMATION
  Report Type: 
  Country: None (occurrence: None)
  Receive Date: 20060908
  Receipt Date: 20060510
  Transmission Date: 20061208
  Serious: Yes (Other)
  Sender: FDA-Public Use
  Company Number: PHEH2006US06218

PATIENT
  Age: 68 Year
  Sex: Female

DRUGS (5)
  1. ZOMETA [Suspect]
     Indication: MULTIPLE MYELOMA
     Dosage: 3 MG EVERY MONTH
     Dates: start: 20030709, end: 20060510
  2. ZOMETA [Suspect]
     Dosage: 3MG QMO
     Dates: start: 20060607
  3. DECADRON [Concomitant]
     Indication: MULTIPLE MYELOMA
     Dosage: 40MG X4D 3X/MO
     Dates: start: 20030407, end: 20040403
  4. DECADRON [Concomitant]
     Dosage: 40MG QD X4 QMO
     Dates: start: 20040505, end: 20040606
  5. THALOMID [Concomitant]
     Indication: MULTIPLE MYELOMA
     Dosage: 200MG QD
     Dates: start: 20030707, end: 20040512

REACTIONS (10)
  - DENTURE WEARER [None]
  - ENDODONTIC PROCEDURE [None]
  - HUMERUS FRACTURE [None]
  - JAW DISORDER [None]
  - MALIGNANT NEOPLASM PROGRESSION [None]
  - PAIN [None]
  - TOOTH EXTRACTION [None]
  - TOOTH FRACTURE [None]
  - TOOTH LOSS [None]
  - TOOTHACHE [None]
